FAERS Safety Report 20227538 (Version 1)
Quarter: 2021Q4

REPORT INFORMATION
  Report Type: Report from Study
  Country: DE (occurrence: DE)
  Receive Date: 20211224
  Receipt Date: 20211224
  Transmission Date: 20220304
  Serious: Yes (Other)
  Sender: FDA-Public Use
  Company Number: DE-JNJFOC-20211238548

PATIENT

DRUGS (1)
  1. ESKETAMINE [Suspect]
     Active Substance: ESKETAMINE
     Indication: Product used for unknown indication

REACTIONS (2)
  - Suicidal ideation [Unknown]
  - Depressive symptom [Unknown]
